FAERS Safety Report 15693939 (Version 2)
Quarter: 2018Q4

REPORT INFORMATION
  Report Type: Spontaneous
  Country: US (occurrence: US)
  Receive Date: 20181206
  Receipt Date: 20181206
  Transmission Date: 20190205
  Serious: Yes (Other)
  Sender: FDA-Public Use
  Company Number: PHHY2018US170412

PATIENT
  Age: 51 Year
  Sex: Male

DRUGS (2)
  1. DECITABINE. [Suspect]
     Active Substance: DECITABINE
     Indication: ACUTE MYELOID LEUKAEMIA
     Dosage: 15 MG/M2, Q8H
     Route: 042
  2. MIDOSTAURIN [Suspect]
     Active Substance: MIDOSTAURIN
     Indication: ACUTE MYELOID LEUKAEMIA
     Dosage: 50 MG, Q12H (ON DAYS 8 THROUGH 21)
     Route: 048

REACTIONS (16)
  - Asthenia [Unknown]
  - Clostridium difficile infection [Unknown]
  - Hypotension [Unknown]
  - Dyspnoea [Unknown]
  - Epistaxis [Unknown]
  - Oedema peripheral [Unknown]
  - Febrile neutropenia [Unknown]
  - Pneumonia respiratory syncytial viral [Unknown]
  - Endocarditis bacterial [Unknown]
  - Respiratory failure [Unknown]
  - Gastrointestinal haemorrhage [Unknown]
  - Acute myeloid leukaemia recurrent [Unknown]
  - Acute myocardial infarction [Unknown]
  - Bacteraemia [Unknown]
  - Muscular weakness [Unknown]
  - Fatigue [Unknown]
